FAERS Safety Report 13062083 (Version 3)
Quarter: 2019Q3

REPORT INFORMATION
  Report Type: Spontaneous
  Country: FR (occurrence: FR)
  Receive Date: 20161226
  Receipt Date: 20190717
  Transmission Date: 20191004
  Serious: Yes (Death, Hospitalization, Other)
  Sender: FDA-Public Use
  Company Number: FR-BRISTOL-MYERS SQUIBB COMPANY-BMS-2016-107849

PATIENT
  Age: 43 Year
  Sex: Female

DRUGS (2)
  1. OPDIVO [Suspect]
     Active Substance: NIVOLUMAB
     Indication: PRODUCT USED FOR UNKNOWN INDICATION
     Dosage: 3 MG/KG, EVERY 15 DAYS
     Route: 065
  2. OPDIVO [Suspect]
     Active Substance: NIVOLUMAB
     Indication: MALIGNANT MELANOMA
     Dosage: 189 MG, UNK
     Route: 042
     Dates: start: 20160107, end: 20160205

REACTIONS (5)
  - Peripheral vascular disorder [Fatal]
  - Palpitations [Unknown]
  - Malignant neoplasm progression [Unknown]
  - Mitochondrial cytopathy [Fatal]
  - Dyspnoea [Unknown]

NARRATIVE: CASE EVENT DATE: 201602
